FAERS Safety Report 5272638-3 (Version None)
Quarter: 2007Q1

REPORT INFORMATION
  Report Type: 
  Country: None (occurrence: None)
  Receive Date: 20070320
  Receipt Date: 20070320
  Transmission Date: 20070707
  Serious: Yes (Death)
  Sender: FDA-Public Use
  Company Number: None

PATIENT
  Age: 33 Year
  Sex: Male
  Weight: 70.3075 kg

DRUGS (6)
  1. LAMIVUDINE + ZIDOVUDINE [Suspect]
     Indication: HIV INFECTION
     Dosage: 1 TABLET BID PO
     Route: 048
     Dates: start: 20060926
  2. EFAVIRENZ [Suspect]
     Indication: HIV INFECTION
     Dosage: 600MG QHS PO
     Route: 048
     Dates: start: 20060926
  3. VITAMIN CAP [Concomitant]
  4. GLYBURIDE [Concomitant]
  5. CAPTOPRIL [Concomitant]
  6. BACTRIM [Concomitant]

REACTIONS (2)
  - CD4 LYMPHOCYTES INCREASED [None]
  - MALAISE [None]
